FAERS Safety Report 6604138-X (Version None)
Quarter: 2010Q1

REPORT INFORMATION
  Report Type: 
  Country: None (occurrence: None)
  Receive Date: 20100226
  Receipt Date: 20090529
  Transmission Date: 20100710
  Serious: No
  Sender: FDA-Public Use
  Company Number: A0789127A

PATIENT
  Age: 13 Year
  Sex: Female

DRUGS (4)
  1. LAMICTAL CD [Suspect]
     Indication: BIPOLAR DISORDER
     Dosage: 100MG UNKNOWN
     Route: 048
     Dates: start: 20090401
  2. DETROL LA [Concomitant]
     Dosage: 4MG UNKNOWN
     Route: 048
  3. NITROFURANTOIN [Concomitant]
  4. VITAMINS [Concomitant]

REACTIONS (2)
  - ENURESIS [None]
  - POLLAKIURIA [None]
